FAERS Safety Report 6814957-2 (Version None)
Quarter: 2010Q3

REPORT INFORMATION
  Report Type: 
  Country: None (occurrence: None)
  Receive Date: 20100702
  Receipt Date: 20100628
  Transmission Date: 20110219
  Serious: Yes (Hospitalization, Other)
  Sender: FDA-Public Use
  Company Number: BE-ABBOTT-10P-013-0652586-00

PATIENT
  Sex: Female
  Weight: 50 kg

DRUGS (5)
  1. HUMIRA [Suspect]
     Indication: COLITIS ULCERATIVE
     Route: 058
     Dates: start: 20091211
  2. CACIT D3 [Concomitant]
     Indication: VITAMIN D DEFICIENCY
     Route: 048
  3. ZANTAC [Concomitant]
     Indication: PROPHYLAXIS AGAINST GASTROINTESTINAL ULCER
  4. ZANTAC [Concomitant]
     Route: 048
  5. URSODIOL [Concomitant]
     Indication: CHOLANGITIS SCLEROSING

REACTIONS (3)
  - ACUTE RESPIRATORY FAILURE [None]
  - DIABETES MELLITUS INADEQUATE CONTROL [None]
  - STAPHYLOCOCCAL SEPSIS [None]
